FAERS Safety Report 8555042-1 (Version None)
Quarter: 2012Q3

REPORT INFORMATION
  Report Type: 
  Country: None (occurrence: None)
  Receive Date: 20120731
  Receipt Date: 20120727
  Transmission Date: 20120928
  Serious: Yes (Other)
  Sender: FDA-Public Use
  Company Number: US-BAYER-2011-027337

PATIENT
  Age: 1 Year
  Sex: Male
  Weight: 9 kg

DRUGS (1)
  1. ALEVE (CAPLET) [Suspect]
     Indication: ACCIDENTAL DRUG INTAKE BY CHILD
     Dosage: UNK
     Route: 048
     Dates: start: 20101229

REACTIONS (1)
  - NO ADVERSE EVENT [None]
